FAERS Safety Report 16027938 (Version 1)
Quarter: 2019Q1

REPORT INFORMATION
  Report Type: Spontaneous
  Country: US (occurrence: US)
  Receive Date: 20190304
  Receipt Date: 20190304
  Transmission Date: 20190418
  Serious: No
  Sender: FDA-Public Use
  Company Number: US-IMPAX LABORATORIES, LLC-2018-IPXL-01117

PATIENT
  Age: 45 Year
  Sex: Male
  Weight: 52 kg

DRUGS (1)
  1. RYTARY [Suspect]
     Active Substance: CARBIDOPA\LEVODOPA
     Indication: PARKINSON^S DISEASE
     Dosage: 48.75/195 MG, 3 CAPSULES 4 TIMES DAILY
     Route: 048
     Dates: start: 2017

REACTIONS (3)
  - Dizziness [Unknown]
  - Sexual dysfunction [Recovering/Resolving]
  - Dyskinesia [Unknown]
